FAERS Safety Report 22019645 (Version 7)
Quarter: 2024Q1

REPORT INFORMATION
  Report Type: Report from Study
  Country: JP (occurrence: JP)
  Receive Date: 20230222
  Receipt Date: 20240214
  Transmission Date: 20240409
  Serious: Yes (Other)
  Sender: FDA-Public Use
  Company Number: JP-INSMED-2022-02191-JPAA

PATIENT
  Age: 78 Year
  Sex: Female
  Weight: 47.4 kg

DRUGS (12)
  1. ARIKAYCE [Suspect]
     Active Substance: AMIKACIN
     Indication: Mycobacterium avium complex infection
     Dosage: 590 MILLIGRAM, QD
     Route: 055
     Dates: start: 20220715, end: 20220808
  2. ARIKAYCE [Suspect]
     Active Substance: AMIKACIN
     Dosage: UNK UNK, BIW
     Route: 055
     Dates: start: 20220812, end: 20220815
  3. ARIKAYCE [Suspect]
     Active Substance: AMIKACIN
     Dosage: UNK, BIW
     Route: 055
     Dates: start: 20220902
  4. ARIKAYCE [Suspect]
     Active Substance: AMIKACIN
     Dosage: UNK, TIW
     Route: 055
     Dates: start: 20221017, end: 20221212
  5. ARIKAYCE [Suspect]
     Active Substance: AMIKACIN
     Dosage: UNK, TIW
     Route: 055
     Dates: start: 20231023
  6. ARIKAYCE [Suspect]
     Active Substance: AMIKACIN
     Dosage: UNK UNK, QOD
     Route: 055
     Dates: start: 202311
  7. ICOSAPENT ETHYL [Suspect]
     Active Substance: ICOSAPENT ETHYL
     Indication: Product used for unknown indication
     Dosage: UNK UNK, UNK
     Route: 048
  8. CLARITHROMYCIN [Concomitant]
     Active Substance: CLARITHROMYCIN
     Indication: Mycobacterium avium complex infection
     Dosage: 800 MILLIGRAM/ DAY
     Route: 065
  9. SITAFLOXACIN [Concomitant]
     Active Substance: SITAFLOXACIN
     Indication: Mycobacterium avium complex infection
     Dosage: 100 MILLIGRAM /DAY
     Route: 065
  10. TEPRENONE [Concomitant]
     Active Substance: TEPRENONE
     Indication: Prophylaxis
     Dosage: 100 MILLIGRAM /DAY
     Route: 048
  11. ISODINE [Concomitant]
     Active Substance: POVIDONE-IODINE
     Indication: Product used for unknown indication
     Dosage: UNK, UNK
     Route: 065
  12. ALESION [Concomitant]
     Active Substance: EPINASTINE HYDROCHLORIDE
     Indication: Product used for unknown indication
     Dosage: 20 MILLIGRAM, UNK
     Route: 065

REACTIONS (10)
  - Chronic kidney disease [Recovering/Resolving]
  - Liver function test increased [Recovered/Resolved]
  - Pyrexia [Recovering/Resolving]
  - Rash [Recovered/Resolved]
  - Cough [Unknown]
  - Off label use [Unknown]
  - Device use issue [Unknown]
  - Drug ineffective [Unknown]
  - Wrong technique in device usage process [Unknown]
  - Accidental underdose [Unknown]

NARRATIVE: CASE EVENT DATE: 20220805
